FAERS Safety Report 18124244 (Version 1)
Quarter: 2020Q3

REPORT INFORMATION
  Report Type: Spontaneous
  Country: SE (occurrence: SE)
  Receive Date: 20200807
  Receipt Date: 20200807
  Transmission Date: 20201103
  Serious: Yes (Other)
  Sender: FDA-Public Use
  Company Number: SE-SHIRE-SE202024843

PATIENT

DRUGS (2)
  1. LOCOID [Suspect]
     Active Substance: HYDROCORTISONE BUTYRATE
     Indication: INFLAMMATION
     Dosage: 18142/75
     Route: 065
     Dates: end: 20200603
  2. ELVANSE [Suspect]
     Active Substance: LISDEXAMFETAMINE DIMESYLATE
     Indication: PRODUCT USED FOR UNKNOWN INDICATION
     Route: 065
     Dates: start: 20200201

REACTIONS (2)
  - Dermatitis [Not Recovered/Not Resolved]
  - Perioral dermatitis [Not Recovered/Not Resolved]

NARRATIVE: CASE EVENT DATE: 202006
